FAERS Safety Report 16206932 (Version 1)
Quarter: 2019Q2

REPORT INFORMATION
  Report Type: Spontaneous
  Country: FR (occurrence: FR)
  Receive Date: 20190417
  Receipt Date: 20190417
  Transmission Date: 20190711
  Serious: Yes (Hospitalization)
  Sender: FDA-Public Use
  Company Number: FR-ROCHE-2303827

PATIENT
  Age: 43 Year
  Sex: Male
  Weight: 99.1 kg

DRUGS (21)
  1. IMBRUVICA [Suspect]
     Active Substance: IBRUTINIB
     Indication: B-CELL LYMPHOMA
     Route: 048
     Dates: start: 20190312, end: 20190314
  2. ETOPOPHOS [Suspect]
     Active Substance: ETOPOSIDE PHOSPHATE
     Indication: B-CELL LYMPHOMA
     Route: 042
     Dates: start: 20190312, end: 20190314
  3. IPRATROPIUM [Suspect]
     Active Substance: IPRATROPIUM
     Indication: PRODUCT USED FOR UNKNOWN INDICATION
     Route: 055
     Dates: start: 20190309, end: 20190314
  4. KARDEGIC [Concomitant]
     Active Substance: ASPIRIN DL-LYSINE
     Route: 065
  5. MABTHERA [Suspect]
     Active Substance: RITUXIMAB
     Indication: B-CELL LYMPHOMA
     Dosage: MOST RECENT DOSE: 12/MAR/2019
     Route: 042
     Dates: start: 20190312
  6. ORACILLINE [Concomitant]
     Active Substance: PENICILLIN V
     Route: 065
  7. PARACETAMOL [Concomitant]
     Active Substance: ACETAMINOPHEN
     Route: 065
  8. ALFUZOSINE [Concomitant]
     Active Substance: ALFUZOSIN HYDROCHLORIDE
     Route: 065
  9. ALLOPURINOL. [Concomitant]
     Active Substance: ALLOPURINOL
     Route: 065
  10. OXYCODONE [Suspect]
     Active Substance: OXYCODONE
     Indication: PAIN
     Route: 048
     Dates: start: 2017, end: 20190315
  11. PANTOPRAZOLE [Concomitant]
     Active Substance: PANTOPRAZOLE
     Route: 065
  12. OXYNORMORO [Suspect]
     Active Substance: OXYCODONE HYDROCHLORIDE
     Indication: PAIN
     Route: 048
     Dates: start: 2017, end: 20190315
  13. IFOSFAMIDE EG [Suspect]
     Active Substance: IFOSFAMIDE
     Indication: B-CELL LYMPHOMA
     Dosage: MOST RECENT DOSE: 13/MAR/2019
     Route: 042
     Dates: start: 20190313
  14. TRIMEBUTINE [Suspect]
     Active Substance: TRIMEBUTINE
     Indication: ABDOMINAL PAIN
     Dosage: 50 MG/5 ML
     Route: 042
     Dates: start: 20190309, end: 20190314
  15. SALBUTAMOL [Concomitant]
     Active Substance: ALBUTEROL
     Route: 065
  16. PREGABALINE [Concomitant]
     Active Substance: PREGABALIN
     Route: 065
  17. PHLOROGLUCINOL/TRIMETHYLPHLOROGLUCINOL [Suspect]
     Active Substance: PHLOROGLUCINOL
     Indication: ABDOMINAL PAIN
     Route: 042
     Dates: start: 20190309, end: 20190315
  18. ONDANSETRON [Suspect]
     Active Substance: ONDANSETRON
     Indication: NAUSEA
     Route: 042
     Dates: start: 20190309, end: 20190314
  19. CARBOPLATINE [Suspect]
     Active Substance: CARBOPLATIN
     Indication: B-CELL LYMPHOMA
     Dosage: 5MG/ML/MIN?MOST RECENT DOSE: 13/MAR/2019
     Route: 042
     Dates: start: 20190313
  20. LAROXYL [Suspect]
     Active Substance: AMITRIPTYLINE HYDROCHLORIDE
     Indication: PAIN
     Route: 048
     Dates: start: 20180205, end: 20190314
  21. MESNA. [Suspect]
     Active Substance: MESNA
     Indication: PROPHYLAXIS
     Dosage: MOST RECENT DOSE: 13/MAR/2019
     Route: 042
     Dates: start: 20190313

REACTIONS (1)
  - Encephalopathy [Recovered/Resolved]

NARRATIVE: CASE EVENT DATE: 20190314
